FAERS Safety Report 8846343 (Version 1)
Quarter: 2012Q4

REPORT INFORMATION
  Report Type: 
  Country: US (occurrence: US)
  Receive Date: 20121018
  Receipt Date: 20121018
  Transmission Date: 20130627
  Serious: No
  Sender: FDA-Public Use
  Company Number: US-BIOGENIDEC-2012BI043869

PATIENT
  Sex: Female

DRUGS (2)
  1. TYSABRI [Suspect]
     Indication: MULTIPLE SCLEROSIS
     Route: 042
  2. TYSABRI [Suspect]
     Indication: MULTIPLE SCLEROSIS
     Route: 042
     Dates: start: 201112, end: 2012

REACTIONS (6)
  - Pallor [Unknown]
  - Heart rate increased [Unknown]
  - Neutralising antibodies [Not Recovered/Not Resolved]
  - Multiple sclerosis relapse [Unknown]
  - Chest pain [Unknown]
  - Nausea [Unknown]
